FAERS Safety Report 18739411 (Version 1)
Quarter: 2021Q1

REPORT INFORMATION
  Report Type: Spontaneous
  Country: US (occurrence: US)
  Receive Date: 20210114
  Receipt Date: 20210114
  Transmission Date: 20210419
  Serious: Yes (Death, Hospitalization, Other)
  Sender: FDA-Public Use
  Company Number: US-APOTEX-2021AP000853

PATIENT
  Age: 13 Year
  Sex: Female

DRUGS (1)
  1. METFORMIN [Suspect]
     Active Substance: METFORMIN HYDROCHLORIDE
     Indication: PRODUCT USED FOR UNKNOWN INDICATION
     Dosage: UNK
     Route: 048

REACTIONS (10)
  - Brain oedema [Not Recovered/Not Resolved]
  - Mental status changes [Not Recovered/Not Resolved]
  - Completed suicide [Fatal]
  - Toxicity to various agents [Fatal]
  - Brain stem ischaemia [Not Recovered/Not Resolved]
  - Hypotension [Not Recovered/Not Resolved]
  - Coagulopathy [Not Recovered/Not Resolved]
  - Multiple organ dysfunction syndrome [Not Recovered/Not Resolved]
  - Brain herniation [Not Recovered/Not Resolved]
  - Cerebral ischaemia [Not Recovered/Not Resolved]

NARRATIVE: CASE EVENT DATE: 2019
